FAERS Safety Report 13104444 (Version 2)
Quarter: 2017Q1

REPORT INFORMATION
  Report Type: Spontaneous
  Country: FR (occurrence: FR)
  Receive Date: 20170111
  Receipt Date: 20170125
  Transmission Date: 20170428
  Serious: Yes (Other)
  Sender: FDA-Public Use
  Company Number: FR-ASTRAZENECA-2005CG01686

PATIENT
  Age: 41 Year
  Sex: Female
  Weight: 102 kg

DRUGS (13)
  1. TAXOL [Interacting]
     Active Substance: PACLITAXEL
     Indication: CHEMOTHERAPY
     Dosage: 162.0MG ONCE/SINGLE ADMINISTRATION
     Route: 042
     Dates: start: 20020529
  2. HERCEPTIN [Interacting]
     Active Substance: TRASTUZUMAB
     Indication: BREAST CANCER
     Dosage: 202.0MG ONCE/SINGLE ADMINISTRATION
     Route: 042
     Dates: start: 20020529
  3. INEXIUM [Suspect]
     Active Substance: ESOMEPRAZOLE
     Indication: ABDOMINAL PAIN UPPER
     Dosage: 20.0MG ONCE/SINGLE ADMINISTRATION
     Route: 048
     Dates: start: 20020531, end: 20020531
  4. TAXOL [Interacting]
     Active Substance: PACLITAXEL
     Indication: BREAST CANCER
     Dosage: 162.0MG ONCE/SINGLE ADMINISTRATION
     Route: 042
     Dates: start: 20020529
  5. HERCEPTIN [Interacting]
     Active Substance: TRASTUZUMAB
     Indication: BREAST CANCER
     Dosage: 202.0MG ONCE/SINGLE ADMINISTRATION
     Route: 042
     Dates: start: 20020523, end: 20020523
  6. TAXOL [Interacting]
     Active Substance: PACLITAXEL
     Indication: BREAST CANCER
     Dosage: 162.0MG ONCE/SINGLE ADMINISTRATION
     Route: 042
     Dates: start: 20020522, end: 20020522
  7. TAXOL [Interacting]
     Active Substance: PACLITAXEL
     Indication: BREAST CANCER
     Dosage: 162.0MG ONCE/SINGLE ADMINISTRATION
     Route: 042
     Dates: start: 20020523, end: 20020523
  8. HERCEPTIN [Interacting]
     Active Substance: TRASTUZUMAB
     Indication: CHEMOTHERAPY
     Dosage: 202.0MG ONCE/SINGLE ADMINISTRATION
     Route: 042
     Dates: start: 20020522, end: 20020522
  9. HERCEPTIN [Interacting]
     Active Substance: TRASTUZUMAB
     Indication: CHEMOTHERAPY
     Dosage: 202.0MG ONCE/SINGLE ADMINISTRATION
     Route: 042
     Dates: start: 20020529
  10. TAXOL [Interacting]
     Active Substance: PACLITAXEL
     Indication: CHEMOTHERAPY
     Dosage: 162.0MG ONCE/SINGLE ADMINISTRATION
     Route: 042
     Dates: start: 20020523, end: 20020523
  11. TAXOL [Interacting]
     Active Substance: PACLITAXEL
     Indication: CHEMOTHERAPY
     Dosage: 162.0MG ONCE/SINGLE ADMINISTRATION
     Route: 042
     Dates: start: 20020522, end: 20020522
  12. HERCEPTIN [Interacting]
     Active Substance: TRASTUZUMAB
     Indication: BREAST CANCER
     Dosage: 202.0MG ONCE/SINGLE ADMINISTRATION
     Route: 042
     Dates: start: 20020522, end: 20020522
  13. HERCEPTIN [Interacting]
     Active Substance: TRASTUZUMAB
     Indication: CHEMOTHERAPY
     Dosage: 202.0MG ONCE/SINGLE ADMINISTRATION
     Route: 042
     Dates: start: 20020523, end: 20020523

REACTIONS (2)
  - Hepatitis [Recovered/Resolved]
  - Drug interaction [Recovered/Resolved]

NARRATIVE: CASE EVENT DATE: 20020603
